FAERS Safety Report 6430673-3 (Version None)
Quarter: 2009Q4

REPORT INFORMATION
  Report Type: 
  Country: None (occurrence: None)
  Receive Date: 20091106
  Receipt Date: 20091029
  Transmission Date: 20100525
  Serious: Yes (Hospitalization)
  Sender: FDA-Public Use
  Company Number: B0601967A

PATIENT
  Age: 89 Year
  Sex: Female

DRUGS (8)
  1. AUGMENTIN [Suspect]
     Indication: LOBAR PNEUMONIA
     Dosage: 3TAB PER DAY
     Route: 048
     Dates: start: 20090715, end: 20090717
  2. ZITHROMAX [Suspect]
     Indication: LOBAR PNEUMONIA
     Dosage: 500MG PER DAY
     Route: 048
     Dates: start: 20090715, end: 20090717
  3. ADIRO [Concomitant]
     Indication: DRUG USE FOR UNKNOWN INDICATION
     Dosage: 100MG PER DAY
     Route: 048
  4. OMEPRAZOLE [Concomitant]
     Indication: DRUG USE FOR UNKNOWN INDICATION
     Dosage: 20MG PER DAY
     Route: 048
  5. SEGURIL [Concomitant]
     Indication: DRUG USE FOR UNKNOWN INDICATION
     Dosage: 40MG PER DAY
     Route: 048
  6. IMIDAPRIL HYDROCHLORIDE [Concomitant]
     Indication: DRUG USE FOR UNKNOWN INDICATION
     Dosage: 5MG PER DAY
     Route: 048
     Dates: start: 20090716, end: 20090721
  7. COROPRES [Concomitant]
     Indication: DRUG USE FOR UNKNOWN INDICATION
     Dosage: 4.5MG PER DAY
     Route: 048
     Dates: start: 20090716
  8. HALOPERIDOL [Concomitant]
     Indication: DRUG USE FOR UNKNOWN INDICATION
     Dosage: 6DROP PER DAY
     Route: 048
     Dates: start: 20090716

REACTIONS (4)
  - BRONCHOSPASM [None]
  - EYELID OEDEMA [None]
  - RASH ERYTHEMATOUS [None]
  - RESPIRATORY DISTRESS [None]
